FAERS Safety Report 25147656 (Version 1)
Quarter: 2025Q2

REPORT INFORMATION
  Report Type: Spontaneous
  Country: JP (occurrence: JP)
  Receive Date: 20250402
  Receipt Date: 20250402
  Transmission Date: 20250716
  Serious: Yes (Other)
  Sender: SANDOZ
  Company Number: JP-SANDOZ INC.-SDZ2025JP019079

PATIENT
  Age: 24 Year
  Sex: Male
  Weight: 93 kg

DRUGS (1)
  1. XYLOCAINE [Suspect]
     Active Substance: LIDOCAINE HYDROCHLORIDE
     Indication: Local anaesthesia

REACTIONS (2)
  - Tonic convulsion [Recovered/Resolved]
  - Loss of consciousness [Recovered/Resolved]
